FAERS Safety Report 12637169 (Version 1)
Quarter: 2016Q3

REPORT INFORMATION
  Report Type: Spontaneous
  Country: US (occurrence: US)
  Receive Date: 20160809
  Receipt Date: 20160809
  Transmission Date: 20161109
  Serious: No
  Sender: FDA-Public Use
  Company Number: US-BEH-2015053703

PATIENT
  Age: 64 Year
  Sex: Female
  Weight: 60 kg

DRUGS (31)
  1. ARMOUR THYROID [Concomitant]
     Active Substance: THYROID, PORCINE
  2. OMEPRAZOLE. [Concomitant]
     Active Substance: OMEPRAZOLE
  3. DEXAMETHASONE. [Concomitant]
     Active Substance: DEXAMETHASONE
  4. NORTRIPTYLINE [Concomitant]
     Active Substance: NORTRIPTYLINE
  5. MELATONIN [Concomitant]
     Active Substance: MELATONIN
  6. LMX [Concomitant]
     Active Substance: LIDOCAINE
  7. FLONASE [Concomitant]
     Active Substance: FLUTICASONE PROPIONATE
  8. ESTRADIOL. [Concomitant]
     Active Substance: ESTRADIOL
  9. POTASSIUM CHLORIDE. [Concomitant]
     Active Substance: POTASSIUM CHLORIDE
  10. ASTELIN [Concomitant]
     Active Substance: AZELASTINE HYDROCHLORIDE
  11. MAGNESIUM [Concomitant]
     Active Substance: MAGNESIUM
  12. DIPHENHYDRAMINE. [Concomitant]
     Active Substance: DIPHENHYDRAMINE
  13. AMBIEN [Concomitant]
     Active Substance: ZOLPIDEM TARTRATE
  14. TESTOSTERONE. [Concomitant]
     Active Substance: TESTOSTERONE
  15. CALCIUM + D [Concomitant]
     Active Substance: CALCIUM\VITAMIN D
  16. SUDAFED [Concomitant]
     Active Substance: PSEUDOEPHEDRINE HYDROCHLORIDE
  17. PRIVIGEN [Suspect]
     Active Substance: HUMAN IMMUNOGLOBULIN G
     Indication: HYPOGAMMAGLOBULINAEMIA
     Dosage: 5 GM VIALS
     Route: 042
  18. CALCITROL [Concomitant]
     Active Substance: CALCITRIOL
  19. VITAMIN E [Concomitant]
     Active Substance: .ALPHA.-TOCOPHEROL
  20. HEPARIN [Concomitant]
     Active Substance: HEPARIN SODIUM
  21. EPIPEN [Concomitant]
     Active Substance: EPINEPHRINE
  22. KLONOPIN [Concomitant]
     Active Substance: CLONAZEPAM
  23. SODIUM CHLORIDE. [Concomitant]
     Active Substance: SODIUM CHLORIDE
  24. LEXAPRO [Concomitant]
     Active Substance: ESCITALOPRAM OXALATE
  25. VITAMIN D3 [Concomitant]
     Active Substance: CHOLECALCIFEROL
  26. ALLEGRA [Concomitant]
     Active Substance: FEXOFENADINE HYDROCHLORIDE
  27. CEFUROXIME. [Concomitant]
     Active Substance: CEFUROXIME
  28. ACETAMINOPHEN. [Concomitant]
     Active Substance: ACETAMINOPHEN
  29. PREDNISONE. [Concomitant]
     Active Substance: PREDNISONE
  30. PROGESTERONE. [Concomitant]
     Active Substance: PROGESTERONE
  31. APEXICON E [Concomitant]
     Active Substance: DIFLORASONE DIACETATE

REACTIONS (3)
  - Feeling abnormal [Unknown]
  - Headache [Unknown]
  - Fatigue [Unknown]

NARRATIVE: CASE EVENT DATE: 20150802
